FAERS Safety Report 21650661 (Version 1)
Quarter: 2022Q4

REPORT INFORMATION
  Report Type: Spontaneous
  Country: HK (occurrence: HK)
  Receive Date: 20221128
  Receipt Date: 20221128
  Transmission Date: 20230112
  Serious: Yes (Other)
  Sender: FDA-Public Use
  Company Number: HK-MYLANLABS-2022M1131533

PATIENT
  Age: 60 Year
  Sex: Female

DRUGS (12)
  1. CARBOPLATIN [Suspect]
     Active Substance: CARBOPLATIN
     Indication: Adrenocortical carcinoma
     Dosage: UNK UNK, CYCLE
     Route: 065
     Dates: start: 201909
  2. CARBOPLATIN [Suspect]
     Active Substance: CARBOPLATIN
     Indication: Metastatic neoplasm
  3. GEMCITABINE [Suspect]
     Active Substance: GEMCITABINE
     Indication: Adrenocortical carcinoma
     Dosage: UNK UNK, CYCLE
     Route: 065
     Dates: start: 201909
  4. GEMCITABINE [Suspect]
     Active Substance: GEMCITABINE
     Indication: Metastatic neoplasm
  5. MITOTANE [Suspect]
     Active Substance: MITOTANE
     Indication: Adrenocortical carcinoma
     Dosage: UNK, THE DOSE TITRATED TO MAINTAIN..
     Route: 065
     Dates: start: 201607
  6. MITOTANE [Suspect]
     Active Substance: MITOTANE
     Indication: Metastatic neoplasm
     Dosage: 4.5 GRAM, QD
     Route: 065
  7. ETOPOSIDE [Suspect]
     Active Substance: ETOPOSIDE
     Indication: Adrenocortical carcinoma
     Dosage: UNK UNK, CYCLE (ETOPOSIDE WAS CONTINUED..)
     Route: 065
     Dates: start: 201701, end: 201705
  8. ETOPOSIDE [Suspect]
     Active Substance: ETOPOSIDE
     Indication: Metastatic neoplasm
  9. METYRAPONE [Suspect]
     Active Substance: METYRAPONE
     Indication: Adrenocortical carcinoma
     Dosage: UNK
     Route: 065
  10. METYRAPONE [Suspect]
     Active Substance: METYRAPONE
     Indication: Metastatic neoplasm
  11. CISPLATIN [Concomitant]
     Active Substance: CISPLATIN
     Indication: Adrenocortical carcinoma
     Dosage: UNK
     Route: 065
     Dates: start: 201701
  12. DOXORUBICIN [Concomitant]
     Active Substance: DOXORUBICIN
     Indication: Adrenocortical carcinoma
     Dosage: UNK
     Route: 065
     Dates: start: 201810, end: 201905

REACTIONS (2)
  - Drug ineffective [Unknown]
  - Disease progression [Unknown]
